FAERS Safety Report 7967650-7 (Version None)
Quarter: 2011Q4

REPORT INFORMATION
  Report Type: 
  Country: None (occurrence: None)
  Receive Date: 20111209
  Receipt Date: 20111201
  Transmission Date: 20120403
  Serious: Yes (Death, Hospitalization)
  Sender: FDA-Public Use
  Company Number: CA-SANOFI-AVENTIS-2011SA079541

PATIENT
  Age: 74 Year
  Sex: Male
  Weight: 98 kg

DRUGS (10)
  1. BISOPROLOL FUMARATE [Concomitant]
     Dates: start: 20100912
  2. OXYBUTYNIN [Concomitant]
     Dates: start: 20100101
  3. ACETAMINOPHEN [Concomitant]
     Dates: start: 20110622
  4. DOCETAXEL [Suspect]
     Indication: BLADDER TRANSITIONAL CELL CARCINOMA METASTATIC
     Route: 041
     Dates: start: 20110825, end: 20110825
  5. SIMVASTATIN [Concomitant]
     Dates: start: 20100912
  6. COUMADIN [Concomitant]
     Dates: start: 20100912, end: 20110901
  7. DEXAMETHASONE [Concomitant]
     Dates: start: 20110824, end: 20110826
  8. INVESTIGATIONAL DRUG [Suspect]
     Indication: BLADDER TRANSITIONAL CELL CARCINOMA METASTATIC
     Route: 042
     Dates: start: 20110825, end: 20110825
  9. ASPIRIN [Concomitant]
     Dates: start: 20100912
  10. BUDESONIDE W/FORMOTEROL FUMARATE [Concomitant]
     Dates: start: 20090101

REACTIONS (4)
  - FEBRILE NEUTROPENIA [None]
  - HAEMORRHAGE [None]
  - DECREASED APPETITE [None]
  - STOMATITIS [None]
